FAERS Safety Report 13701042 (Version 2)
Quarter: 2017Q3

REPORT INFORMATION
  Report Type: Spontaneous
  Country: US (occurrence: US)
  Receive Date: 20170629
  Receipt Date: 20170907
  Transmission Date: 20171127
  Serious: Yes (Death, Other)
  Sender: FDA-Public Use
  Company Number: US-JNJFOC-20170625648

PATIENT
  Age: 41 Year
  Sex: Female

DRUGS (2)
  1. INVOKANA [Suspect]
     Active Substance: CANAGLIFLOZIN
     Indication: WEIGHT DECREASED
     Dosage: FIRST DOSE WAS 10 MG THEN IT WAS INCREASED TO 300 MG
     Route: 048
     Dates: start: 20140711, end: 20150801
  2. INVOKANA [Suspect]
     Active Substance: CANAGLIFLOZIN
     Indication: TYPE 2 DIABETES MELLITUS
     Dosage: FIRST DOSE WAS 10 MG THEN IT WAS INCREASED TO 300 MG
     Route: 048
     Dates: start: 20140711, end: 20150801

REACTIONS (6)
  - Diabetic complication [Fatal]
  - Diabetic coma [Unknown]
  - Bipolar disorder [Unknown]
  - Schizophrenia [Unknown]
  - Diabetic ketoacidosis [Unknown]
  - Acute kidney injury [Unknown]

NARRATIVE: CASE EVENT DATE: 201408
